FAERS Safety Report 10813643 (Version 1)
Quarter: 2015Q1

REPORT INFORMATION
  Report Type: Spontaneous
  Country: JP (occurrence: JP)
  Receive Date: 20150218
  Receipt Date: 20150218
  Transmission Date: 20150721
  Serious: Yes (Hospitalization)
  Sender: FDA-Public Use
  Company Number: JP-ELI_LILLY_AND_COMPANY-JP201502004298

PATIENT
  Age: 80 Year
  Sex: Female
  Weight: 55.5 kg

DRUGS (12)
  1. BIO-THREE [Concomitant]
     Active Substance: HERBALS
     Dosage: 1 DF, TID
     Route: 048
  2. ETIZOLAM [Concomitant]
     Active Substance: ETIZOLAM
     Dosage: 1 MG, QD
     Route: 048
  3. RABEPRAZOLE SODIUM. [Concomitant]
     Active Substance: RABEPRAZOLE SODIUM
     Dosage: 10 MG, QD
     Route: 048
  4. MAGMITT [Concomitant]
     Active Substance: MAGNESIUM OXIDE
     Dosage: 330 MG, TID
     Route: 048
  5. EDIROL [Concomitant]
     Active Substance: ELDECALCITOL
     Dosage: 0.75 UG, QD
     Route: 048
  6. SULPIRID [Concomitant]
     Active Substance: SULPIRIDE
     Dosage: 25 MG, TID
     Route: 048
  7. TIZANIDINE (TIZANIDINE) [Concomitant]
     Active Substance: TIZANIDINE
     Dosage: 1 MG, TID
     Route: 048
  8. SHAKUYAKUKANZOTO [Concomitant]
     Active Substance: HERBALS
     Dosage: 1 DF, QD
     Route: 048
  9. REBAMIPIDE [Concomitant]
     Active Substance: REBAMIPIDE
     Dosage: 100 MG, TID
     Route: 048
  10. VOLTAREN [Concomitant]
     Active Substance: DICLOFENAC SODIUM
     Dosage: 25 MG, TID
     Route: 048
  11. EVISTA [Suspect]
     Active Substance: RALOXIFENE HYDROCHLORIDE
     Indication: OSTEOPOROSIS
     Dosage: 60 MG, QD
     Route: 048
     Dates: end: 20150116
  12. DAIKENCHUTO [Concomitant]
     Active Substance: HERBALS
     Dosage: 1 DF, TID
     Route: 048

REACTIONS (3)
  - Back pain [Unknown]
  - Deep vein thrombosis [Recovered/Resolved]
  - Pulmonary embolism [Recovered/Resolved]

NARRATIVE: CASE EVENT DATE: 20150115
